FAERS Safety Report 18218205 (Version 1)
Quarter: 2020Q3

REPORT INFORMATION
  Report Type: Spontaneous
  Country: US (occurrence: US)
  Receive Date: 20200901
  Receipt Date: 20200901
  Transmission Date: 20201103
  Serious: No
  Sender: FDA-Public Use
  Company Number: US-BRECKENRIDGE PHARMACEUTICAL, INC.-2089283

PATIENT
  Sex: Female

DRUGS (1)
  1. OXCARBAZEPINE TABLET, FILM COATED [Suspect]
     Active Substance: OXCARBAZEPINE
     Route: 048

REACTIONS (6)
  - Gait disturbance [None]
  - Diplopia [None]
  - Fatigue [None]
  - Dizziness [None]
  - Heart rate increased [None]
  - Nausea [None]
